FAERS Safety Report 5478153-6 (Version None)
Quarter: 2007Q4

REPORT INFORMATION
  Report Type: 
  Country: None (occurrence: None)
  Receive Date: 20071005
  Receipt Date: 20070118
  Transmission Date: 20080405
  Serious: No
  Sender: FDA-Public Use
  Company Number: US-BRISTOL-MYERS SQUIBB COMPANY-13646823

PATIENT
  Age: 68 Year
  Sex: Female
  Weight: 100 kg

DRUGS (11)
  1. AVAPRO [Suspect]
     Indication: BLOOD PRESSURE INCREASED
     Dates: start: 20060101
  2. METFORMIN HCL [Suspect]
     Indication: TYPE 2 DIABETES MELLITUS
     Dates: start: 20060101
  3. BYETTA [Suspect]
     Indication: TYPE 2 DIABETES MELLITUS
     Dosage: 5MCG;BID;SC 2006-2006
     Route: 058
     Dates: start: 20060101
  4. ACTOS [Concomitant]
     Dates: start: 20060101
  5. BENICAR [Concomitant]
     Dates: start: 20060101
  6. VERAPMIL [Concomitant]
  7. FUROSEMIDE [Concomitant]
  8. TOPROL-XL [Concomitant]
  9. PLAVIX [Concomitant]
  10. VYTORIN [Concomitant]
  11. CARDURA [Concomitant]

REACTIONS (2)
  - BLOOD GLUCOSE INCREASED [None]
  - RENAL FUNCTION TEST ABNORMAL [None]
